FAERS Safety Report 8572251-6 (Version None)
Quarter: 2012Q3

REPORT INFORMATION
  Report Type: 
  Country: None (occurrence: None)
  Receive Date: 20120806
  Receipt Date: 20120727
  Transmission Date: 20120928
  Serious: Yes (Hospitalization, Other)
  Sender: FDA-Public Use
  Company Number: US-AMGEN-USANI2012047390

PATIENT
  Age: 30 Year
  Sex: Female
  Weight: 72.6 kg

DRUGS (24)
  1. OMEPRAZOLE [Concomitant]
     Indication: DYSPEPSIA
     Dosage: UNK UNK, QD
     Route: 048
     Dates: start: 20111111, end: 20120714
  2. TERBUTALINE [Concomitant]
     Indication: PREMATURE LABOUR
     Dosage: UNK UNK, QD
     Dates: start: 20120603, end: 20120620
  3. MULTI-VITAMINS [Concomitant]
     Dosage: UNK UNK, QD
     Route: 048
     Dates: start: 20111111, end: 20120714
  4. PROGESTERONE [Concomitant]
     Indication: IN VITRO FERTILISATION
     Dosage: 250 MG, QWK
     Dates: start: 20111117, end: 20120629
  5. EXTRA STRENGTH TYLENOL [Concomitant]
     Indication: RHEUMATOID ARTHRITIS
     Dosage: UNK
     Dates: start: 20111111, end: 20120714
  6. FLUTICASONE PROPIONATE [Concomitant]
     Dosage: UNK UNK, BID
     Route: 055
     Dates: start: 20120326, end: 20120330
  7. CALCIUM CARBONATE [Concomitant]
     Indication: DYSPEPSIA
     Dosage: UNK UNK, QD
     Dates: start: 20120319, end: 20120714
  8. MAGNESIUM [Concomitant]
     Dosage: UNK UNK, QD
     Dates: start: 20120603, end: 20120603
  9. RELAFEN [Concomitant]
     Indication: RHEUMATOID ARTHRITIS
     Dosage: 2000 MG, QD
     Route: 048
     Dates: start: 20111111, end: 20111119
  10. IRON [Concomitant]
     Dosage: 325 MG, QOD
     Route: 048
     Dates: start: 20120603, end: 20120714
  11. ZYRTEC [Concomitant]
     Indication: HYPERSENSITIVITY
     Dosage: 10 MG, QD
     Route: 048
     Dates: start: 20111111, end: 20120714
  12. MACROBID [Concomitant]
     Indication: PNEUMONIA
     Dosage: UNK UNK, QD
     Route: 048
     Dates: start: 20120326, end: 20120402
  13. XOPENEX HFA [Concomitant]
     Dosage: UNK UNK, QD
     Dates: start: 20120326, end: 20120330
  14. CLOMID [Concomitant]
     Indication: IN VITRO FERTILISATION
     Dosage: UNK UNK, QD
     Dates: start: 20111115, end: 20111115
  15. AMOXICILLIN [Concomitant]
     Indication: SINUSITIS
     Dosage: 1000 MG, QD
     Route: 048
     Dates: start: 20120409, end: 20120413
  16. FLAGYL [Concomitant]
     Indication: VAGINITIS BACTERIAL
     Dosage: 500 MG, QOD
     Route: 048
     Dates: start: 20120604, end: 20120609
  17. VICODIN [Concomitant]
     Indication: RHEUMATOID ARTHRITIS
     Dosage: 30 MG, QD
     Route: 048
     Dates: start: 20111111, end: 20120616
  18. PREDNISONE [Concomitant]
     Indication: RHEUMATOID ARTHRITIS
     Dosage: 10 MG, QD
     Route: 048
     Dates: start: 20111111, end: 20120714
  19. ASPIRIN [Concomitant]
     Dosage: 81 MG, QD
     Route: 048
     Dates: start: 20111111, end: 20111203
  20. ZITHROMAX [Concomitant]
     Indication: PNEUMONIA
     Dosage: UNK UNK, QD
     Route: 048
     Dates: start: 20120326, end: 20120329
  21. BETAMETHASONE [Concomitant]
     Indication: PREMATURE LABOUR
     Dosage: UNK UNK, QD
     Dates: start: 20120603, end: 20120604
  22. ETANERCEPT [Suspect]
     Indication: RHEUMATOID ARTHRITIS
     Dosage: 50 MG, QWK
     Route: 058
     Dates: start: 20111111, end: 20120714
  23. CHORIONIC GONADOTROPIN [Concomitant]
     Indication: IN VITRO FERTILISATION
     Dosage: UNK UNK, QD
     Dates: start: 20111123, end: 20111123
  24. FOLIC ACID [Concomitant]
     Dosage: 1 MG, QD
     Route: 048
     Dates: start: 20120319, end: 20120714

REACTIONS (1)
  - PREMATURE DELIVERY [None]
